FAERS Safety Report 4703618-1 (Version None)
Quarter: 2005Q2

REPORT INFORMATION
  Report Type: 
  Country: None (occurrence: None)
  Receive Date: 20050628
  Receipt Date: 20050614
  Transmission Date: 20051028
  Serious: Yes (Other)
  Sender: FDA-Public Use
  Company Number: 2005084847

PATIENT
  Sex: Female
  Weight: 95.2554 kg

DRUGS (5)
  1. MACUGEN [Suspect]
     Indication: MACULAR DEGENERATION
     Dosage: INTRAVENOUS
     Route: 042
     Dates: start: 20050311, end: 20050311
  2. COSOPT [Concomitant]
  3. LUMIGAN [Concomitant]
  4. CENTRUM SILVER (ASCORBIC ACID, CALCIUM, MINERALS NOS, RETINOL, TOCOPHE [Concomitant]
  5. PRESERVISION SOFTGELS WITH LUTEIN (MINERALS NOS, VITAMINS NOS, XANTHOP [Concomitant]

REACTIONS (13)
  - CHROMATOPSIA [None]
  - DISEASE PROGRESSION [None]
  - DRUG INEFFECTIVE [None]
  - EMOTIONAL DISTRESS [None]
  - EYE IRRITATION [None]
  - INTRAOCULAR PRESSURE INCREASED [None]
  - LACRIMATION INCREASED [None]
  - MACULAR DEGENERATION [None]
  - MENTAL DISORDER [None]
  - PHARMACEUTICAL PRODUCT COMPLAINT [None]
  - RETINAL SCAR [None]
  - THINKING ABNORMAL [None]
  - VISUAL DISTURBANCE [None]
